FAERS Safety Report 4459283-4 (Version None)
Quarter: 2004Q3

REPORT INFORMATION
  Report Type: 
  Country: None (occurrence: None)
  Receive Date: 20040914
  Receipt Date: 20040825
  Transmission Date: 20050211
  Serious: Yes (Other)
  Sender: FDA-Public Use
  Company Number: 500897

PATIENT
  Age: 50 Year
  Sex: Male
  Weight: 70 kg

DRUGS (1)
  1. RECOMBINATE (RECOMBINATE ANTIHEMOPHILIC FACTOR VIII) [Suspect]
     Indication: FACTOR VIII DEFICIENCY
     Dosage: 14400 IU; QD; INTRAVENOUS
     Route: 042
     Dates: start: 19970108, end: 19990912

REACTIONS (4)
  - FACTOR VIII INHIBITION [None]
  - HERNIA REPAIR [None]
  - OPERATIVE HAEMORRHAGE [None]
  - POST PROCEDURAL HAEMORRHAGE [None]
